FAERS Safety Report 17838494 (Version 3)
Quarter: 2020Q2

REPORT INFORMATION
  Report Type: Report from Study
  Country: CO (occurrence: CO)
  Receive Date: 20200528
  Receipt Date: 20200609
  Transmission Date: 20200714
  Serious: Yes (Life-Threatening, Hospitalization, Other)
  Sender: FDA-Public Use
  Company Number: NVSC2020CO145377

PATIENT
  Sex: Male
  Weight: 93 kg

DRUGS (1)
  1. REVOLADE [Suspect]
     Active Substance: ELTROMBOPAG
     Indication: IMMUNE THROMBOCYTOPENIA
     Dosage: 25 MG, QD
     Route: 048
     Dates: end: 201908

REACTIONS (10)
  - Malaise [Unknown]
  - COVID-19 [Unknown]
  - Pyrexia [Recovered/Resolved]
  - Platelet count decreased [Unknown]
  - Cough [Recovered/Resolved]
  - Blood glucose increased [Unknown]
  - Chills [Unknown]
  - Chest pain [Unknown]
  - Pneumonia [Unknown]
  - Blood glucose decreased [Unknown]
